FAERS Safety Report 6684951-3 (Version None)
Quarter: 2010Q2

REPORT INFORMATION
  Report Type: 
  Country: None (occurrence: None)
  Receive Date: 20100416
  Receipt Date: 20100406
  Transmission Date: 20101027
  Serious: Yes (Hospitalization)
  Sender: FDA-Public Use
  Company Number: AT-WYE-H14532110

PATIENT
  Age: 33 Year
  Sex: Female

DRUGS (1)
  1. PANTOPRAZOLE [Suspect]
     Indication: PROPHYLAXIS
     Route: 048

REACTIONS (6)
  - ANAPHYLACTIC REACTION [None]
  - CHEST DISCOMFORT [None]
  - CONJUNCTIVITIS [None]
  - NAUSEA [None]
  - OEDEMA PERIPHERAL [None]
  - VERTIGO [None]
